FAERS Safety Report 13116443 (Version 3)
Quarter: 2018Q4

REPORT INFORMATION
  Report Type: Report from Study
  Country: None (occurrence: HU)
  Receive Date: 20170116
  Receipt Date: 20181004
  Transmission Date: 20190204
  Serious: Yes (Death, Hospitalization)
  Sender: FDA-Public Use
  Company Number: HU-ABBVIE-17K-076-1834964-00

PATIENT
  Age: 46 Year
  Sex: Female

DRUGS (1)
  1. HUMIRA [Suspect]
     Active Substance: ADALIMUMAB
     Indication: PRODUCT USED FOR UNKNOWN INDICATION
     Route: 058
     Dates: end: 2016

REACTIONS (18)
  - Thrombocytopenia [Fatal]
  - Diverticular perforation [Fatal]
  - Abdominal pain upper [Fatal]
  - Sepsis [Fatal]
  - Vomiting [Unknown]
  - Pseudomonas infection [Unknown]
  - Diarrhoea [Unknown]
  - Bile output abnormal [Fatal]
  - Intestinal resection [Fatal]
  - Rectal haemorrhage [Unknown]
  - Enterobacter infection [Unknown]
  - Cardiopulmonary failure [Fatal]
  - Gastrointestinal stoma necrosis [Unknown]
  - Colitis [Unknown]
  - Pyrexia [Unknown]
  - Abdominal abscess [Fatal]
  - Nausea [Unknown]
  - Vomiting [Fatal]

NARRATIVE: CASE EVENT DATE: 201611
